FAERS Safety Report 11078907 (Version 3)
Quarter: 2015Q2

REPORT INFORMATION
  Report Type: Spontaneous
  Country: US (occurrence: None)
  Receive Date: 20150428
  Receipt Date: 20150515
  Transmission Date: 20150821
  Serious: Yes (Death)
  Sender: FDA-Public Use
  Company Number: AMAG201500330

PATIENT
  Sex: Male

DRUGS (1)
  1. FERAHEME [Suspect]
     Active Substance: FERUMOXYTOL NON-STOICHIOMETRIC MAGNETITE
     Route: 042
     Dates: start: 201412

REACTIONS (8)
  - Back pain [None]
  - Pallor [None]
  - Vomiting [None]
  - Infusion related reaction [None]
  - Cardio-respiratory arrest [None]
  - Skin discolouration [None]
  - Feeling abnormal [None]
  - Malaise [None]

NARRATIVE: CASE EVENT DATE: 201503
